FAERS Safety Report 8906914 (Version 1)
Quarter: 2012Q4

REPORT INFORMATION
  Report Type: 
  Country: US (occurrence: US)
  Receive Date: 20121114
  Receipt Date: 20121114
  Transmission Date: 20130627
  Serious: No
  Sender: FDA-Public Use
  Company Number: US-B.I. PHARMACEUTICALS,INC./RIDGEFIELD-2012-BP-27513BP

PATIENT
  Age: 32 None
  Sex: Female
  Weight: 75 kg

DRUGS (2)
  1. ZANTAC 150 (RANITIDINE HYDROCHLORIDE) [Suspect]
     Indication: HISTAMINE ABNORMAL
     Dosage: 300 mg
     Route: 048
     Dates: start: 20121109
  2. FEXOFENADINE [Concomitant]
     Indication: SEASONAL ALLERGY
     Dosage: 180 mg
     Route: 048
     Dates: start: 20121109

REACTIONS (2)
  - Gastrooesophageal reflux disease [Not Recovered/Not Resolved]
  - Rhinorrhoea [Not Recovered/Not Resolved]
